FAERS Safety Report 23912249 (Version 7)
Quarter: 2025Q3

REPORT INFORMATION
  Report Type: Spontaneous
  Country: JP (occurrence: JP)
  Receive Date: 20240528
  Receipt Date: 20250802
  Transmission Date: 20251020
  Serious: Yes (Hospitalization, Other)
  Sender: ALEXION PHARMACEUTICALS
  Company Number: 2024A121044

PATIENT
  Age: 83 Year
  Sex: Male
  Weight: 45 kg

DRUGS (6)
  1. DAPAGLIFLOZIN [Suspect]
     Active Substance: DAPAGLIFLOZIN
     Dosage: 10 MILLIGRAM, QD
     Dates: start: 20240425, end: 20240520
  2. BISOPROLOL [Suspect]
     Active Substance: BISOPROLOL
     Dosage: 1.25 MILLIGRAM, QD
     Dates: start: 20240404, end: 20240424
  3. BISOPROLOL [Suspect]
     Active Substance: BISOPROLOL
     Dosage: .625 MILLIGRAM, QD
     Dates: start: 20240425
  4. SACUBITRIL [Suspect]
     Active Substance: SACUBITRIL
     Indication: Cardiac failure
     Dosage: 100 MILLIGRAM, QD
     Dates: start: 20240404, end: 20240425
  5. ELIQUIS [Suspect]
     Active Substance: APIXABAN
     Indication: Atrial fibrillation
     Dosage: 5 MILLIGRAM, QD
     Dates: start: 20240404
  6. ENTRESTO [Suspect]
     Active Substance: SACUBITRIL\VALSARTAN
     Indication: Cardiac failure
     Dates: start: 20240404, end: 20240425

REACTIONS (4)
  - Embolic stroke [Recovered/Resolved with Sequelae]
  - Dehydration [Recovered/Resolved]
  - Blood pressure decreased [Recovered/Resolved]
  - Hepatic function abnormal [Recovered/Resolved]

NARRATIVE: CASE EVENT DATE: 20240425
